FAERS Safety Report 7552375-2 (Version None)
Quarter: 2011Q2

REPORT INFORMATION
  Report Type: 
  Country: None (occurrence: None)
  Receive Date: 20110616
  Receipt Date: 20050221
  Transmission Date: 20111010
  Serious: Yes (Life-Threatening, Hospitalization)
  Sender: FDA-Public Use
  Company Number: PHHO2005JP01595

PATIENT
  Sex: Male

DRUGS (8)
  1. ACECOL [Suspect]
     Indication: HYPERTENSION
     Dosage: 2 MG, UNK
     Route: 048
     Dates: start: 20030514, end: 20031115
  2. PERSANTIN [Concomitant]
     Indication: PROTEINURIA
     Dates: start: 20030514, end: 20031115
  3. GLIMICRON [Concomitant]
     Indication: DIABETES MELLITUS
     Dates: start: 20030514, end: 20031115
  4. DIOVAN [Suspect]
     Dosage: 40 MG, UNK
     Route: 048
     Dates: start: 20030922, end: 20031115
  5. ADALAT CC [Concomitant]
     Indication: HYPERTENSION
     Dates: start: 20030514, end: 20031115
  6. LASIX [Suspect]
     Indication: HYPERTENSION
     Dosage: 40 MG, UNK
     Route: 048
     Dates: start: 20030514, end: 20031115
  7. LIPITOR [Suspect]
     Indication: HYPERCHOLESTEROLAEMIA
     Dosage: 10 MG, UNK
     Route: 048
     Dates: start: 20030514, end: 20031115
  8. ALLOPURINOL [Concomitant]
     Indication: HYPERURICAEMIA
     Dates: start: 20030514, end: 20031115

REACTIONS (2)
  - AZOTAEMIA [None]
  - RENAL FAILURE CHRONIC [None]
